FAERS Safety Report 5308377-X (Version None)
Quarter: 2007Q2

REPORT INFORMATION
  Report Type: 
  Country: None (occurrence: None)
  Receive Date: 20070420
  Receipt Date: 20070409
  Transmission Date: 20071010
  Serious: Yes (Other)
  Sender: FDA-Public Use
  Company Number: S06-USA-04902-01

PATIENT
  Age: 62 Year
  Sex: Female

DRUGS (7)
  1. THYROID TAB [Suspect]
     Indication: HYPOTHYROIDISM
     Dosage: 180 MG QOD PO
     Route: 048
     Dates: start: 20000101, end: 20061001
  2. THYROID TAB [Suspect]
     Indication: HYPOTHYROIDISM
     Dosage: 150 MG QOD PO
     Route: 048
     Dates: start: 20000101, end: 20060101
  3. THYROID TAB [Suspect]
     Indication: HYPOTHYROIDISM
     Dosage: 150 MG PO
     Route: 048
     Dates: start: 20061001, end: 20061119
  4. THYROID TAB [Suspect]
     Indication: HYPOTHYROIDISM
     Dosage: 120 MG PO
     Route: 048
     Dates: start: 20061001, end: 20061119
  5. THYROID TAB [Suspect]
     Indication: HYPOTHYROIDISM
     Dosage: 150 MG Q0D PO
     Route: 048
     Dates: start: 20061120, end: 20070405
  6. THYROID TAB [Suspect]
     Indication: HYPOTHYROIDISM
     Dosage: 120 MG QOD PO
     Route: 048
     Dates: start: 20061120, end: 20070405
  7. THYROID TAB [Suspect]
     Indication: HYPOTHYROIDISM
     Dosage: 150 MG QD PO
     Route: 048
     Dates: start: 20070406

REACTIONS (27)
  - ANTINUCLEAR ANTIBODY INCREASED [None]
  - ARTHRITIS [None]
  - BLOOD THYROID STIMULATING HORMONE DECREASED [None]
  - CARDIAC MURMUR [None]
  - CHILLS [None]
  - DIPLOPIA [None]
  - DYSPNOEA [None]
  - ELECTRIC SHOCK [None]
  - FEELING ABNORMAL [None]
  - HEADACHE [None]
  - LYMPHOCYTE COUNT DECREASED [None]
  - MEAN CELL HAEMOGLOBIN INCREASED [None]
  - MONOCYTE COUNT INCREASED [None]
  - MOUTH ULCERATION [None]
  - NERVE COMPRESSION [None]
  - ORAL MUCOSAL DISCOLOURATION [None]
  - PALPITATIONS [None]
  - PYREXIA [None]
  - RASH [None]
  - RED BLOOD CELL SEDIMENTATION RATE INCREASED [None]
  - SENSATION OF FOREIGN BODY [None]
  - SENSATION OF PRESSURE [None]
  - SKIN EXFOLIATION [None]
  - STOMATITIS [None]
  - SYSTEMIC LUPUS ERYTHEMATOSUS [None]
  - TRI-IODOTHYRONINE INCREASED [None]
  - WHITE BLOOD CELL COUNT DECREASED [None]
